FAERS Safety Report 10121008 (Version 1)
Quarter: 2014Q2

REPORT INFORMATION
  Report Type: Spontaneous
  Country: SK (occurrence: SK)
  Receive Date: 20140425
  Receipt Date: 20140425
  Transmission Date: 20141212
  Serious: Yes (Other)
  Sender: FDA-Public Use
  Company Number: SK-GLAXOSMITHKLINE-B0988573A

PATIENT
  Age: 65 Year
  Sex: Female

DRUGS (5)
  1. PAZOPANIB [Suspect]
     Indication: CLEAR CELL RENAL CELL CARCINOMA
     Route: 065
     Dates: start: 20111028
  2. EUTHYROX [Concomitant]
  3. CAVINTON [Concomitant]
  4. VALSARTAN / HYDROCHLOROTHIAZIDE [Concomitant]
  5. MILURIT [Concomitant]

REACTIONS (2)
  - Breast cancer [Unknown]
  - Metastasis [Unknown]
